FAERS Safety Report 13255474 (Version 1)
Quarter: 2017Q1

REPORT INFORMATION
  Report Type: Spontaneous
  Country: US (occurrence: US)
  Receive Date: 20170221
  Receipt Date: 20170221
  Transmission Date: 20170428
  Serious: Yes (Other)
  Sender: FDA-Public Use
  Company Number: US-TEVA-685020USA

PATIENT
  Sex: Female
  Weight: 58.11 kg

DRUGS (2)
  1. NORTREL [Suspect]
     Active Substance: ETHINYL ESTRADIOL\NORETHINDRONE
     Indication: CONTRACEPTION
     Dosage: 1 MG/0.035 MG
     Dates: start: 201509
  2. NORTREL [Suspect]
     Active Substance: ETHINYL ESTRADIOL\NORETHINDRONE
     Indication: CYST

REACTIONS (2)
  - Product use issue [Unknown]
  - Blood thyroid stimulating hormone increased [Unknown]
